FAERS Safety Report 9454571 (Version 2)
Quarter: 2013Q3

REPORT INFORMATION
  Report Type: Report from Study
  Country: US (occurrence: US)
  Receive Date: 20130812
  Receipt Date: 20130826
  Transmission Date: 20140515
  Serious: Yes (Hospitalization, Other)
  Sender: FDA-Public Use
  Company Number: US-GENZYME-LEUK-1000359

PATIENT
  Age: 81 Year
  Sex: Male
  Weight: 83.6 kg

DRUGS (16)
  1. LEUKINE [Suspect]
     Indication: METASTATIC MALIGNANT MELANOMA
     Dosage: 250 MCG, QD (ON DAY 1-14 OF MAINTENANCE THERAPY) COURSE 36
     Route: 058
     Dates: start: 20130611, end: 20130625
  2. LEUKINE [Suspect]
     Dosage: 250 MCG, QD (COURSE 38)
     Route: 058
     Dates: start: 20130723
  3. LEUKINE [Suspect]
     Dosage: 250 MCG, QD (COURSE 39)
     Route: 058
     Dates: start: 20130814
  4. IPILIMUMAB [Suspect]
     Indication: METASTATIC MALIGNANT MELANOMA
     Dosage: 10 MG/KG, QD (OVER 90 MINS ON DAY OF MAINTENANCE THERAPY, COURSE 36
     Route: 042
     Dates: start: 20130611, end: 20130611
  5. LOVENOX [Concomitant]
     Indication: DEEP VEIN THROMBOSIS
     Dosage: UNK
     Route: 065
     Dates: start: 2011
  6. LOVENOX [Concomitant]
     Indication: PULMONARY EMBOLISM
  7. PRADEXA [Concomitant]
     Indication: DEEP VEIN THROMBOSIS
     Dosage: UNK
     Route: 065
     Dates: start: 2013
  8. PRADEXA [Concomitant]
     Indication: PULMONARY EMBOLISM
  9. SODIUM [Concomitant]
     Indication: PRODUCT USED FOR UNKNOWN INDICATION
     Dosage: UNK
     Route: 048
  10. OMEPRAZOLE [Concomitant]
     Indication: PRODUCT USED FOR UNKNOWN INDICATION
     Dosage: 40 MG, QD
     Route: 048
     Dates: start: 20110629
  11. OXYCODONE [Concomitant]
     Indication: PAIN
     Dosage: 5 MG, 1-2 TAB, Q4HR PRN
     Route: 048
     Dates: start: 20110629
  12. POLYETHYLENE GLYCOL [Concomitant]
     Indication: CONSTIPATION
     Dosage: 17 G, QD, PRN
     Route: 048
     Dates: start: 20120801, end: 20130731
  13. QUETIAPINE [Concomitant]
     Indication: PRODUCT USED FOR UNKNOWN INDICATION
     Dosage: 25 MG, QD PRN
     Route: 048
     Dates: start: 20121114, end: 20130731
  14. SALT [Concomitant]
     Indication: PRODUCT USED FOR UNKNOWN INDICATION
     Dosage: 1 G, TID
     Route: 048
     Dates: start: 20130206
  15. SENNA [Concomitant]
     Indication: CONSTIPATION
     Dosage: 17.2 MG, BID PRN
     Route: 048
     Dates: start: 20110527, end: 20130531
  16. PROTONIX [Concomitant]
     Indication: PRODUCT USED FOR UNKNOWN INDICATION
     Dosage: UNK
     Route: 041

REACTIONS (3)
  - Upper gastrointestinal haemorrhage [Unknown]
  - Neoplasm progression [Unknown]
  - Anaemia [Unknown]
